FAERS Safety Report 19394361 (Version 1)
Quarter: 2021Q2

REPORT INFORMATION
  Report Type: Report from Study
  Country: GB (occurrence: GB)
  Receive Date: 20210609
  Receipt Date: 20210609
  Transmission Date: 20210717
  Serious: Yes (Hospitalization, Other)
  Sender: FDA-Public Use
  Company Number: GB-GW PHARMA-201907GBGW2458

PATIENT

DRUGS (5)
  1. SODIUM VALPROATE [Concomitant]
     Active Substance: VALPROATE SODIUM
     Indication: EPILEPSY
     Dosage: 240 MILLIGRAM, BID
     Route: 065
  2. STIRIPENTOL [Concomitant]
     Active Substance: STIRIPENTOL
     Indication: EPILEPSY
     Dosage: 400 MILLIGRAM, BID
     Route: 065
  3. EPIDIOLEX [Suspect]
     Active Substance: CANNABIDIOL
     Indication: EPILEPSY
     Dosage: 80 MILLIGRAM, BID
     Route: 048
     Dates: start: 20190418, end: 20190513
  4. TOPIRAMATE. [Concomitant]
     Active Substance: TOPIRAMATE
     Indication: EPILEPSY
     Dosage: 75 MILLIGRAM, BID
     Route: 065
  5. CLOBAZAM. [Concomitant]
     Active Substance: CLOBAZAM
     Indication: EPILEPSY
     Dosage: 3 MILLIGRAM, BID
     Route: 065

REACTIONS (5)
  - Thrombocytopenia [Recovered/Resolved]
  - Pneumothorax [Unknown]
  - Sepsis [Recovered/Resolved]
  - Seizure [Unknown]
  - Upper respiratory tract infection [Unknown]

NARRATIVE: CASE EVENT DATE: 201905
